FAERS Safety Report 5670270-0 (Version None)
Quarter: 2008Q1

REPORT INFORMATION
  Report Type: 
  Country: None (occurrence: None)
  Receive Date: 20080318
  Receipt Date: 20080310
  Transmission Date: 20080703
  Serious: Yes (Hospitalization, Other)
  Sender: FDA-Public Use
  Company Number: US-BRISTOL-MYERS SQUIBB COMPANY-14107924

PATIENT
  Age: 78 Year
  Sex: Female

DRUGS (9)
  1. SULFAMETHOXAZOLE AND TRIMETHOPRIM [Interacting]
     Indication: URINARY TRACT INFECTION
     Dosage: 1 DOSAGE FORM: 160/800 MG
  2. CARBIDOPA AND LEVODOPA [Suspect]
     Indication: RESTLESS LEGS SYNDROME
  3. LISINOPRIL AND HYDROCHLOROTHIAZIDE [Suspect]
  4. FAMOTIDINE [Suspect]
     Indication: GASTROOESOPHAGEAL REFLUX DISEASE
  5. TRIMETHOPRIM [Interacting]
     Indication: PROPHYLAXIS URINARY TRACT INFECTION
  6. MEMANTINE HCL [Interacting]
     Indication: DEMENTIA ALZHEIMER'S TYPE
     Dosage: DOSE WAS REDUCED TO 5 MG EVERY MORNING AND 10 MG AT NIGHT
     Dates: start: 20060101
  7. DONEPEZIL HCL [Suspect]
     Dates: start: 20030101
  8. ATORVASTATIN CALCIUM [Suspect]
  9. PAROXETINE [Suspect]

REACTIONS (5)
  - DELIRIUM [None]
  - DEMENTIA ALZHEIMER'S TYPE [None]
  - DRUG INTERACTION [None]
  - DRUG INTOLERANCE [None]
  - MYOCLONUS [None]
